FAERS Safety Report 25904079 (Version 3)
Quarter: 2025Q4

REPORT INFORMATION
  Report Type: Report from Study
  Country: US (occurrence: US)
  Receive Date: 20251010
  Receipt Date: 20251214
  Transmission Date: 20260118
  Serious: Yes (Other)
  Sender: GLAXOSMITHKLINE
  Company Number: US-GLAXOSMITHKLINE INC-US2025122254

PATIENT
  Age: 69 Year
  Sex: Female

DRUGS (3)
  1. BELIMUMAB [Suspect]
     Active Substance: BELIMUMAB
     Indication: Product used for unknown indication
     Dosage: UNK
  2. BELIMUMAB [Suspect]
     Active Substance: BELIMUMAB
     Indication: Product used for unknown indication
     Dosage: 120 MG, Q4W
  3. BELIMUMAB [Suspect]
     Active Substance: BELIMUMAB
     Dosage: 400 MG, Q4W

REACTIONS (11)
  - Systemic lupus erythematosus [Unknown]
  - Dry eye [Not Recovered/Not Resolved]
  - Corneal disorder [Unknown]
  - Stomatitis [Unknown]
  - Mouth ulceration [Unknown]
  - Oral herpes [Unknown]
  - Conjunctivitis [Unknown]
  - Swelling of eyelid [Not Recovered/Not Resolved]
  - Eye disorder [Unknown]
  - Condition aggravated [Unknown]
  - Product dose omission issue [Unknown]

NARRATIVE: CASE EVENT DATE: 20250901
